FAERS Safety Report 5168372-0 (Version None)
Quarter: 2006Q4

REPORT INFORMATION
  Report Type: 
  Country: None (occurrence: None)
  Receive Date: 20061129
  Receipt Date: 20061121
  Transmission Date: 20070319
  Serious: Yes (Death, Life-Threatening)
  Sender: FDA-Public Use
  Company Number: HQWYE348122NOV06

PATIENT
  Age: 80 Year
  Sex: Male

DRUGS (5)
  1. MYLOTARG [Suspect]
     Indication: ACUTE MYELOID LEUKAEMIA RECURRENT
     Dosage: 9 MG/M^2 1X PER 1 DAY
     Route: 041
     Dates: start: 20061023, end: 20061023
  2. ZYVOX [Concomitant]
  3. AZACTAM [Concomitant]
  4. CIPROXAN                 (CIPROFLOXACIN HYDROCHLORIDE) [Concomitant]
  5. AMIKACIN [Concomitant]

REACTIONS (3)
  - BLOOD BILIRUBIN INCREASED [None]
  - NEUTROPHIL COUNT DECREASED [None]
  - SEPSIS [None]
